FAERS Safety Report 8242938-3 (Version None)
Quarter: 2012Q1

REPORT INFORMATION
  Report Type: 
  Country: None (occurrence: None)
  Receive Date: 20120329
  Receipt Date: 20120329
  Transmission Date: 20120608
  Serious: Yes (Other)
  Sender: FDA-Public Use
  Company Number: None

PATIENT
  Age: 28 Year
  Sex: Male
  Weight: 65.77 kg

DRUGS (1)
  1. CYMBALTA [Suspect]
     Indication: MAJOR DEPRESSION
     Dosage: 60 MILLIGRAMS
     Route: 048

REACTIONS (34)
  - LOSS OF CONSCIOUSNESS [None]
  - HOT FLUSH [None]
  - DIZZINESS [None]
  - FEELING COLD [None]
  - CONSTIPATION [None]
  - MUSCLE TIGHTNESS [None]
  - HALLUCINATION, AUDITORY [None]
  - SUICIDAL IDEATION [None]
  - ANXIETY [None]
  - PRURITUS [None]
  - PARAESTHESIA [None]
  - HEADACHE [None]
  - FATIGUE [None]
  - DISTURBANCE IN ATTENTION [None]
  - CRYING [None]
  - DRUG DOSE OMISSION [None]
  - CONVULSION [None]
  - DEPRESSION [None]
  - DYSPNOEA [None]
  - MYALGIA [None]
  - HYPERAESTHESIA [None]
  - INSOMNIA [None]
  - DEPRESSED MOOD [None]
  - VERTIGO [None]
  - DECREASED APPETITE [None]
  - DISSOCIATION [None]
  - PAIN [None]
  - ANGER [None]
  - DRUG WITHDRAWAL SYNDROME [None]
  - NAUSEA [None]
  - INFLUENZA LIKE ILLNESS [None]
  - AURA [None]
  - MOOD SWINGS [None]
  - VISUAL IMPAIRMENT [None]
